FAERS Safety Report 5735782-X (Version None)
Quarter: 2008Q2

REPORT INFORMATION
  Report Type: 
  Country: None (occurrence: None)
  Receive Date: 20080509
  Receipt Date: 20080509
  Transmission Date: 20081010
  Serious: No
  Sender: FDA-Public Use
  Company Number: None

PATIENT
  Sex: Female
  Weight: 68.9467 kg

DRUGS (1)
  1. ZYRTEC [Suspect]
     Indication: RHINITIS ALLERGIC
     Dosage: ONCE DAILY PO USED X 2-3 DAYS
     Route: 048

REACTIONS (3)
  - DRUG INEFFECTIVE [None]
  - RASH [None]
  - THERAPEUTIC RESPONSE UNEXPECTED WITH DRUG SUBSTITUTION [None]
